FAERS Safety Report 4559854-0 (Version None)
Quarter: 2005Q1

REPORT INFORMATION
  Report Type: 
  Country: None (occurrence: None)
  Receive Date: 20050107
  Receipt Date: 20040414
  Transmission Date: 20050727
  Serious: Yes (Hospitalization)
  Sender: FDA-Public Use
  Company Number: 04P-163-0258187-00

PATIENT
  Age: 3 Year
  Sex: Male

DRUGS (1)
  1. OMNICEF [Suspect]
     Dosage: PER ORAL
     Route: 048
     Dates: start: 20040401, end: 20040401

REACTIONS (1)
  - CLOSTRIDIUM COLITIS [None]
